FAERS Safety Report 5988716-7 (Version None)
Quarter: 2008Q4

REPORT INFORMATION
  Report Type: 
  Country: None (occurrence: None)
  Receive Date: 20081210
  Receipt Date: 20081202
  Transmission Date: 20090506
  Serious: Yes (Other)
  Sender: FDA-Public Use
  Company Number: PHHY2008JP20361

PATIENT
  Age: 74 Year
  Sex: Female

DRUGS (1)
  1. LAMISIL [Suspect]
     Dosage: UNK
     Route: 048
     Dates: start: 20080501

REACTIONS (2)
  - BUCCAL MUCOSAL ROUGHENING [None]
  - DYSGEUSIA [None]
